FAERS Safety Report 25498681 (Version 1)
Quarter: 2025Q3

REPORT INFORMATION
  Report Type: Spontaneous
  Country: GB (occurrence: GB)
  Receive Date: 20250701
  Receipt Date: 20250701
  Transmission Date: 20251020
  Serious: Yes (Hospitalization, Disabling, Other)
  Sender: DR REDDYS
  Company Number: None

PATIENT
  Age: 33 Year
  Sex: Male
  Weight: 65 kg

DRUGS (1)
  1. FINASTERIDE [Suspect]
     Active Substance: FINASTERIDE
     Indication: Product used for unknown indication

REACTIONS (1)
  - Depersonalisation/derealisation disorder [Not Recovered/Not Resolved]
